FAERS Safety Report 7845585 (Version 2)
Quarter: 2012Q4

REPORT INFORMATION
  Report Type: 
  Country: US (occurrence: US)
  Receive Date: 20110308
  Receipt Date: 20121129
  Transmission Date: 20130627
  Serious: Yes (Other)
  Sender: FDA-Public Use
  Company Number: US-BAYER-2011-019275

PATIENT
  Age: 29 Year
  Sex: Female

DRUGS (1)
  1. MIRENA [Suspect]
     Dosage: 20 mcg/24hr, CONT
     Route: 015
     Dates: start: 200806, end: 201012

REACTIONS (12)
  - Uterine perforation [None]
  - Device dislocation [None]
  - Device dislocation [None]
  - Depression suicidal [None]
  - Affect lability [None]
  - Abdominal pain [None]
  - Pyrexia [None]
  - Vomiting [None]
  - Pelvic pain [None]
  - Injury [None]
  - Emotional distress [None]
  - Pain [None]
